FAERS Safety Report 19168585 (Version 1)
Quarter: 2021Q2

REPORT INFORMATION
  Report Type: Spontaneous
  Country: US (occurrence: US)
  Receive Date: 20210422
  Receipt Date: 20210422
  Transmission Date: 20210717
  Serious: Yes (Other)
  Sender: FDA-Public Use
  Company Number: US-DRREDDYS-USA/USA/21/0134624

PATIENT
  Age: 19 Year
  Sex: Male

DRUGS (2)
  1. ZENATANE [Suspect]
     Active Substance: ISOTRETINOIN
     Indication: PRODUCT USED FOR UNKNOWN INDICATION
     Dosage: RMA ISSUE DATE :1/11/2021 12:00:00 AM,2/5/2021 12:00:00 AM,3/4/2021 12:00:00 AM
     Route: 048
  2. ZENATANE [Suspect]
     Active Substance: ISOTRETINOIN
     Dosage: 9/3/2020 12:00:00 AM, 10/8/2020 12:00:00 AM, 11/9/2020 12:00:00 AM, 12/10/2020 12:00:00 AM, 1/11/202
     Route: 048

REACTIONS (1)
  - Depression [Unknown]
